FAERS Safety Report 5732488-8 (Version None)
Quarter: 2008Q2

REPORT INFORMATION
  Report Type: 
  Country: None (occurrence: None)
  Receive Date: 20080508
  Receipt Date: 20080428
  Transmission Date: 20081010
  Serious: Yes (Other)
  Sender: FDA-Public Use
  Company Number: FR-GENENTECH-259175

PATIENT
  Sex: Female
  Weight: 52 kg

DRUGS (2)
  1. HERCEPTIN [Suspect]
     Indication: BREAST CANCER METASTATIC
     Dosage: 300 MG, Q3W
     Route: 065
     Dates: start: 20030101
  2. XELODA [Suspect]
     Indication: BREAST CANCER METASTATIC
     Dosage: 3750 MG, UNKNOWN
     Route: 048
     Dates: start: 20070201

REACTIONS (2)
  - INFECTION [None]
  - PALMAR-PLANTAR ERYTHRODYSAESTHESIA SYNDROME [None]
